FAERS Safety Report 18256012 (Version 1)
Quarter: 2020Q3

REPORT INFORMATION
  Report Type: Spontaneous
  Country: FR (occurrence: FR)
  Receive Date: 20200911
  Receipt Date: 20200911
  Transmission Date: 20201103
  Serious: Yes (Hospitalization)
  Sender: FDA-Public Use
  Company Number: FR-TEVA-2020-FR-1825129

PATIENT
  Age: 69 Year
  Sex: Male
  Weight: 52 kg

DRUGS (6)
  1. TOVIAZ [Concomitant]
     Active Substance: FESOTERODINE FUMARATE
     Route: 048
  2. KARDEGIC [Concomitant]
     Active Substance: ASPIRIN DL-LYSINE
     Route: 048
  3. CARBOPLATINE [Suspect]
     Active Substance: CARBOPLATIN
     Indication: BRONCHIAL CARCINOMA
     Dosage: 180 MG
     Route: 042
     Dates: start: 20200615, end: 20200615
  4. UROREC [Concomitant]
     Active Substance: SILODOSIN
     Route: 048
  5. PACLITAXEL. [Suspect]
     Active Substance: PACLITAXEL
     Indication: BRONCHIAL CARCINOMA
     Dosage: 132 MG
     Route: 042
     Dates: start: 20200615, end: 20200615
  6. REQUIP LP 8 MG, COMPRIME PELLICULE A LIBERATION PROLONGEE [Concomitant]
     Active Substance: ROPINIROLE HYDROCHLORIDE
     Route: 048
     Dates: start: 2016

REACTIONS (2)
  - Colitis ischaemic [Recovered/Resolved with Sequelae]
  - Septic shock [Recovered/Resolved]

NARRATIVE: CASE EVENT DATE: 20200701
